FAERS Safety Report 7683854-5 (Version None)
Quarter: 2011Q3

REPORT INFORMATION
  Report Type: 
  Country: None (occurrence: None)
  Receive Date: 20110815
  Receipt Date: 20110808
  Transmission Date: 20111222
  Serious: Yes (Other)
  Sender: FDA-Public Use
  Company Number: US-SHIRE-ALL1-2011-02658

PATIENT
  Sex: Female
  Weight: 57.143 kg

DRUGS (11)
  1. ZINC [Concomitant]
     Indication: VITAMIN SUPPLEMENTATION
     Dosage: UNK, UNKNOWN
     Route: 048
  2. FLAXSEED OIL [Concomitant]
     Indication: SUPPLEMENTATION THERAPY
     Dosage: UNK, UNKNOWN
     Route: 048
  3. AMBIEN [Concomitant]
     Indication: INSOMNIA
     Dosage: UNK UNK, AS REQ'D
     Route: 048
  4. VYVANSE [Suspect]
     Indication: ATTENTION DEFICIT/HYPERACTIVITY DISORDER
     Dosage: 30 MG, 1X/DAY:QD
     Route: 048
     Dates: start: 20080810, end: 20080101
  5. LAMICTAL [Concomitant]
     Indication: MOOD ALTERED
     Dosage: 100 MG, UNKNOWN
     Route: 048
  6. VYVANSE [Suspect]
     Dosage: 30 MG, 1X/DAY:QD
     Route: 048
     Dates: start: 20100809, end: 20100812
  7. VITAMINS NOS [Concomitant]
     Indication: VITAMIN SUPPLEMENTATION
     Dosage: UNK, 1X/DAY:QD
     Route: 048
  8. VYVANSE [Suspect]
     Dosage: UNK UNK, 2X/DAY:BID(1/2 30 MG CAPSULE IN THE MORNING AND THEN 1/2 30 MG CAPSULE LATER THAT MORNING)
     Route: 048
     Dates: start: 20100807, end: 20100808
  9. PROZAC [Concomitant]
     Indication: DEPRESSION
     Dosage: 30 MG, 1X/DAY:QD
     Route: 048
  10. DROSPIRENONE AND ETHINYL ESTRADIOL [Concomitant]
     Indication: CONTRACEPTION
     Dosage: UNK, 1X/DAY:QD
     Route: 048
  11. XANAX [Concomitant]
     Indication: PRODUCT USED FOR UNKNOWN INDICATION
     Dosage: 0.5 MG, UNKNOWN
     Route: 048

REACTIONS (17)
  - SUICIDAL IDEATION [None]
  - ASTHENIA [None]
  - CONDITION AGGRAVATED [None]
  - CONTUSION [None]
  - DRUG PRESCRIBING ERROR [None]
  - AFFECT LABILITY [None]
  - HYPERHIDROSIS [None]
  - DRUG EFFECT DECREASED [None]
  - ALCOHOLISM [None]
  - NICOTINE DEPENDENCE [None]
  - FEELING ABNORMAL [None]
  - SINUSITIS [None]
  - MEMORY IMPAIRMENT [None]
  - CHANGE IN SUSTAINED ATTENTION [None]
  - ANXIETY [None]
  - HEADACHE [None]
  - NEGATIVISM [None]
